FAERS Safety Report 9267250 (Version 2)
Quarter: 2013Q2

REPORT INFORMATION
  Report Type: Report from Study
  Country: US (occurrence: US)
  Receive Date: 20130502
  Receipt Date: 20130619
  Transmission Date: 20140414
  Serious: Yes (Hospitalization, Other)
  Sender: FDA-Public Use
  Company Number: US-ABBOTT-13P-163-1080882-00

PATIENT
  Age: 63 Year
  Sex: Female
  Weight: 98.97 kg

DRUGS (5)
  1. HUMIRA [Suspect]
     Indication: RHEUMATOID ARTHRITIS
     Dates: start: 201301, end: 201306
  2. HUMIRA [Suspect]
  3. SYNTHROID [Concomitant]
     Indication: THYROID DISORDER
     Dates: start: 1997
  4. METFORMIN [Concomitant]
     Indication: DIABETES MELLITUS
  5. AMLODIPINE [Concomitant]
     Indication: HYPERTENSION

REACTIONS (4)
  - Factor V Leiden mutation [Unknown]
  - Local swelling [Recovering/Resolving]
  - Deep vein thrombosis [Recovering/Resolving]
  - Chest discomfort [Recovered/Resolved]
